FAERS Safety Report 5523239-0 (Version None)
Quarter: 2007Q4

REPORT INFORMATION
  Report Type: 
  Country: None (occurrence: None)
  Receive Date: 20071116
  Receipt Date: 20071116
  Transmission Date: 20080405
  Serious: Yes (Life-Threatening)
  Sender: FDA-Public Use
  Company Number: None

PATIENT
  Age: 65 Year
  Sex: Male
  Weight: 84 kg

DRUGS (1)
  1. ADENOSINE [Suspect]
     Indication: DIAGNOSTIC PROCEDURE
     Dosage: 40MG ONCE IV
     Route: 042
     Dates: start: 20071114, end: 20071114

REACTIONS (1)
  - BRONCHOSPASM [None]
